FAERS Safety Report 7977765-5 (Version None)
Quarter: 2011Q4

REPORT INFORMATION
  Report Type: 
  Country: None (occurrence: None)
  Receive Date: 20111214
  Receipt Date: 20111130
  Transmission Date: 20120403
  Serious: No
  Sender: FDA-Public Use
  Company Number: US-AMGEN-USASP2011056196

PATIENT
  Age: 5 Year
  Sex: Female
  Weight: 19 kg

DRUGS (3)
  1. FOLIC ACID [Concomitant]
     Dosage: 1 MG, UNK
     Route: 048
  2. ENBREL [Suspect]
     Indication: JUVENILE ARTHRITIS
     Dosage: 15 MG, QWK
     Route: 058
     Dates: start: 20110401
  3. METHOTREXATE [Concomitant]
     Indication: JUVENILE ARTHRITIS
     Dosage: 10 MG, UNK
     Route: 048

REACTIONS (2)
  - NAUSEA [None]
  - VOMITING [None]
